FAERS Safety Report 4397112-8 (Version None)
Quarter: 2004Q3

REPORT INFORMATION
  Report Type: 
  Country: None (occurrence: None)
  Receive Date: 20040713
  Receipt Date: 20040630
  Transmission Date: 20050211
  Serious: No
  Sender: FDA-Public Use
  Company Number: 2004UW11692

PATIENT
  Age: 71 Year
  Sex: Male
  Weight: 84.369 kg

DRUGS (6)
  1. CRESTOR [Suspect]
     Indication: HYPERLIPIDAEMIA
     Dosage: 10 MG DAILY PO
     Route: 048
     Dates: start: 20040420, end: 20040529
  2. ATENOLOL [Concomitant]
  3. PRINIVIL [Concomitant]
  4. FELODIPINE [Concomitant]
  5. HYDROCHLOROTHIAZIDE [Concomitant]
  6. AVANDIA [Concomitant]

REACTIONS (2)
  - CHROMATURIA [None]
  - MUSCLE CRAMP [None]
